FAERS Safety Report 5782024-5 (Version None)
Quarter: 2008Q2

REPORT INFORMATION
  Report Type: 
  Country: None (occurrence: None)
  Receive Date: 20080623
  Receipt Date: 20080611
  Transmission Date: 20081010
  Serious: Yes (Hospitalization)
  Sender: FDA-Public Use
  Company Number: FR-MERCK-0806FRA00026

PATIENT
  Age: 77 Year
  Sex: Male

DRUGS (2)
  1. PRIMAXIN [Suspect]
     Indication: INFECTION
     Route: 042
     Dates: start: 20080421, end: 20080519
  2. LINEZOLID [Suspect]
     Indication: INFECTION
     Route: 048
     Dates: start: 20080421, end: 20080519

REACTIONS (5)
  - ANAEMIA [None]
  - APLASIA PURE RED CELL [None]
  - BONE MARROW FAILURE [None]
  - EOSINOPHILIA [None]
  - PLASMACYTOSIS [None]
